FAERS Safety Report 4698652-4 (Version None)
Quarter: 2005Q2

REPORT INFORMATION
  Report Type: 
  Country: None (occurrence: None)
  Receive Date: 20050622
  Receipt Date: 20050321
  Transmission Date: 20051028
  Serious: No
  Sender: FDA-Public Use
  Company Number: SU-2005-003364

PATIENT
  Age: 67 Year
  Sex: Female
  Weight: 65.7716 kg

DRUGS (3)
  1. BENICAR HCT [Suspect]
     Indication: HYPERTENSION
     Dosage: 40.125 MG QD PO
     Route: 048
     Dates: start: 20050311
  2. GLUCOSAMINE/CHONDROITIN [Concomitant]
  3. MSM [Concomitant]

REACTIONS (2)
  - DIZZINESS [None]
  - HEADACHE [None]
